FAERS Safety Report 11444426 (Version 3)
Quarter: 2015Q4

REPORT INFORMATION
  Report Type: Spontaneous
  Country: US (occurrence: US)
  Receive Date: 20150902
  Receipt Date: 20151020
  Transmission Date: 20160304
  Serious: No
  Sender: FDA-Public Use
  Company Number: US-AMGEN-USASP2015088429

PATIENT
  Age: 52 Year
  Sex: Female
  Weight: 87.75 kg

DRUGS (2)
  1. ENBREL [Suspect]
     Active Substance: ETANERCEPT
     Indication: RHEUMATOID ARTHRITIS
     Dosage: 50 MG, QWK
     Route: 058
  2. ULTRAM [Concomitant]
     Active Substance: TRAMADOL HYDROCHLORIDE
     Indication: PAIN
     Dosage: 1 TAB BY MOUTH 2 TIMES DAILY AS NEEDED FOR PAIN
     Route: 048

REACTIONS (7)
  - Malaise [Unknown]
  - Underdose [Unknown]
  - Device issue [Unknown]
  - Joint swelling [Unknown]
  - Mobility decreased [Unknown]
  - Arthralgia [Unknown]
  - Limb discomfort [Unknown]

NARRATIVE: CASE EVENT DATE: 20140616
